FAERS Safety Report 4292085-0 (Version None)
Quarter: 2004Q1

REPORT INFORMATION
  Report Type: 
  Country: None (occurrence: None)
  Receive Date: 20040126
  Receipt Date: 20031031
  Transmission Date: 20041129
  Serious: No
  Sender: FDA-Public Use
  Company Number: USA031151389

PATIENT
  Age: 57 Year
  Sex: Female
  Weight: 89 kg

DRUGS (6)
  1. FORTEO [Suspect]
     Dates: start: 20030801
  2. SYNTHROID [Concomitant]
  3. TRIAMTERENE AND HYDROCHLOROTHIAZIDE [Concomitant]
  4. NEXIUM [Concomitant]
  5. LIPITOR [Concomitant]
  6. MYOFLEX (TROLAMINE SALICYLATE) [Concomitant]

REACTIONS (13)
  - ABDOMINAL DISTENSION [None]
  - ARTHRALGIA [None]
  - BREAST ENGORGEMENT [None]
  - EPISTAXIS [None]
  - EYE SWELLING [None]
  - FLUID RETENTION [None]
  - HEART RATE DECREASED [None]
  - HEART RATE INCREASED [None]
  - PAIN [None]
  - RED BLOOD CELLS URINE POSITIVE [None]
  - SKIN HYPERTROPHY [None]
  - SWELLING [None]
  - WEIGHT INCREASED [None]
